FAERS Safety Report 11934868 (Version 1)
Quarter: 2016Q1

REPORT INFORMATION
  Report Type: Spontaneous
  Country: FR (occurrence: FR)
  Receive Date: 20160121
  Receipt Date: 20160121
  Transmission Date: 20160526
  Serious: Yes (Death, Hospitalization)
  Sender: FDA-Public Use
  Company Number: FR-MALLINCKRODT-T201600143

PATIENT
  Age: 1 Day
  Sex: Male
  Weight: .93 kg

DRUGS (1)
  1. OFIRMEV [Suspect]
     Active Substance: ACETAMINOPHEN
     Indication: PRODUCT USED FOR UNKNOWN INDICATION
     Dosage: 70 MG OVER 6 HOURS
     Route: 042

REACTIONS (5)
  - Haemorrhage neonatal [Fatal]
  - Bradycardia [Fatal]
  - Oxygen saturation decreased [Fatal]
  - Overdose [Fatal]
  - Cardiac arrest [Fatal]

NARRATIVE: CASE EVENT DATE: 20070531
